FAERS Safety Report 7689166-8 (Version None)
Quarter: 2011Q3

REPORT INFORMATION
  Report Type: 
  Country: None (occurrence: None)
  Receive Date: 20110811
  Receipt Date: 20110728
  Transmission Date: 20111222
  Serious: Yes (Death)
  Sender: FDA-Public Use
  Company Number: 2011-317

PATIENT
  Age: 69 Year
  Sex: Female

DRUGS (1)
  1. FAZACLO ODT [Suspect]
     Dosage: 50 MG, QD, ORAL
     Route: 048
     Dates: start: 20091015, end: 20110609

REACTIONS (4)
  - DIABETIC COMPLICATION [None]
  - MEDICAL DEVICE COMPLICATION [None]
  - FAILURE TO THRIVE [None]
  - REFUSAL OF TREATMENT BY RELATIVE [None]
